FAERS Safety Report 13354276 (Version 1)
Quarter: 2017Q1

REPORT INFORMATION
  Report Type: Spontaneous
  Country: FR (occurrence: FR)
  Receive Date: 20170321
  Receipt Date: 20170321
  Transmission Date: 20170429
  Serious: Yes (Life-Threatening, Hospitalization)
  Sender: FDA-Public Use
  Company Number: FR-AUROBINDO-AUR-APL-2017-30933

PATIENT
  Age: 18 Year
  Sex: Male

DRUGS (7)
  1. CERUBIDINE [Suspect]
     Active Substance: DAUNORUBICIN HYDROCHLORIDE
     Indication: B-CELL TYPE ACUTE LEUKAEMIA
     Dosage: 80 MG AT DAY 8, DAY 15, DAY 22 AND DAY 23
     Route: 042
     Dates: start: 20170106, end: 20170122
  2. LARGACTIL                          /00011901/ [Concomitant]
     Active Substance: CHLORPROMAZINE
     Indication: PRODUCT USED FOR UNKNOWN INDICATION
     Dosage: 100 MG, DAILY
     Route: 065
  3. KIDROLASE [Suspect]
     Active Substance: ASPARAGINASE
     Indication: B-CELL TYPE ACUTE LEUKAEMIA
     Dosage: 12000 UI AT DAY 8, DAY 10, DAY 12, DAY 15, DAY 17, DAY 19, DAY 22, DAY 24 AND DAY 26
     Route: 042
     Dates: start: 20170106, end: 20170125
  4. HYDROCORTANCYL                     /00016201/ [Suspect]
     Active Substance: PREDNISONE
     Indication: B-CELL TYPE ACUTE LEUKAEMIA
     Dosage: 50 MG AT DAY 8, DAY 15 AND DAY 22
     Route: 042
     Dates: start: 20170106, end: 20170121
  5. XEROQUEL [Concomitant]
     Active Substance: QUETIAPINE FUMARATE
     Indication: PRODUCT USED FOR UNKNOWN INDICATION
     Dosage: 800 MG, DAILY
     Route: 065
  6. PREDNISONE ARROW [Suspect]
     Active Substance: PREDNISONE
     Indication: B-CELL TYPE ACUTE LEUKAEMIA
     Dosage: 60 MG FROM DAY 1 TO DAY 7, THEN 80 MG FROM DAY 8 TO DAY 28
     Route: 048
     Dates: start: 20161230, end: 20170127
  7. VINCRISTINE HOSPIRA [Suspect]
     Active Substance: VINCRISTINE
     Indication: B-CELL TYPE ACUTE LEUKAEMIA
     Dosage: 2 MG AT DAY 8, DAY 15, DAY 22 AND DAY 29
     Route: 042
     Dates: start: 20170106, end: 20170128

REACTIONS (1)
  - Posterior reversible encephalopathy syndrome [Recovered/Resolved]

NARRATIVE: CASE EVENT DATE: 20170208
